FAERS Safety Report 26071765 (Version 1)
Quarter: 2025Q4

REPORT INFORMATION
  Report Type: Spontaneous
  Country: EU (occurrence: EU)
  Receive Date: 20251120
  Receipt Date: 20251120
  Transmission Date: 20260117
  Serious: Yes (Other)
  Sender: NOVARTIS
  Company Number: EU-002147023-NVSC2025FR178631

PATIENT
  Age: 14 Year
  Sex: Female

DRUGS (5)
  1. CYCLOSPORINE [Suspect]
     Active Substance: CYCLOSPORINE
     Indication: Acute febrile neutrophilic dermatosis
     Dosage: 4 MG/KG, QD
     Route: 065
  2. CYCLOSPORINE [Suspect]
     Active Substance: CYCLOSPORINE
     Dosage: 5 MG/KG, QD
     Route: 065
  3. DAPSONE [Concomitant]
     Active Substance: DAPSONE
     Indication: Acute febrile neutrophilic dermatosis
     Dosage: 100 MG, QD (INCREASED UNTIL 100MG/DAY (NO EFFICACY)
     Route: 065
  4. ADALIMUMAB [Concomitant]
     Active Substance: ADALIMUMAB
     Indication: Acute febrile neutrophilic dermatosis
     Dosage: 40 MG (40 MG/15 DAYS)
     Route: 065
  5. ADALIMUMAB [Concomitant]
     Active Substance: ADALIMUMAB
     Dosage: 40 MG (40 MG/21 DAYS, THEN STOPPED AFTER 2.5YEARS WITHOUT RECURRENCE (5 MONTHS))
     Route: 065

REACTIONS (2)
  - Nephropathy toxic [Unknown]
  - Drug ineffective for unapproved indication [Unknown]
